FAERS Safety Report 7745711-5 (Version None)
Quarter: 2011Q3

REPORT INFORMATION
  Report Type: 
  Country: None (occurrence: None)
  Receive Date: 20110907
  Receipt Date: 20110822
  Transmission Date: 20111222
  Serious: Yes (Other)
  Sender: FDA-Public Use
  Company Number: THQ2011A05400

PATIENT
  Age: 23 Year
  Sex: Female

DRUGS (2)
  1. RIZATRIPTAN [Concomitant]
  2. LANSOPRAZOLE [Suspect]
     Indication: DYSPEPSIA
     Dosage: 30 MG (30 MG, 1 IN 1 D), PER ORAL
     Route: 048
     Dates: start: 20100817, end: 20101111

REACTIONS (4)
  - MATERNAL EXPOSURE DURING PREGNANCY [None]
  - ABORTION SPONTANEOUS [None]
  - INTRA-UTERINE DEATH [None]
  - PREGNANCY [None]
